FAERS Safety Report 17515798 (Version 1)
Quarter: 2020Q1

REPORT INFORMATION
  Report Type: Spontaneous
  Country: US (occurrence: US)
  Receive Date: 20200309
  Receipt Date: 20200309
  Transmission Date: 20200409
  Serious: No
  Sender: FDA-Public Use
  Company Number: US-JNJFOC-20200243333

PATIENT
  Age: 64 Year
  Sex: Male
  Weight: 74.4 kg

DRUGS (3)
  1. XARELTO [Suspect]
     Active Substance: RIVAROXABAN
     Indication: PRODUCT USED FOR UNKNOWN INDICATION
     Route: 048
  2. REMODULIN [Suspect]
     Active Substance: TREPROSTINIL
     Indication: PULMONARY ARTERIAL HYPERTENSION
     Route: 058
     Dates: start: 20191126
  3. REMODULIN [Suspect]
     Active Substance: TREPROSTINIL
     Route: 058

REACTIONS (10)
  - Pain in jaw [Unknown]
  - Infusion site erythema [Unknown]
  - Pain in extremity [Unknown]
  - Anxiety [Unknown]
  - Arthralgia [Unknown]
  - Eructation [Unknown]
  - Infusion site haemorrhage [Unknown]
  - Oedema peripheral [Unknown]
  - Infusion site pain [Unknown]
  - Skin discolouration [Unknown]

NARRATIVE: CASE EVENT DATE: 201911
